FAERS Safety Report 19147003 (Version 2)
Quarter: 2021Q2

REPORT INFORMATION
  Report Type: Report from Study
  Country: US (occurrence: US)
  Receive Date: 20210416
  Receipt Date: 20210601
  Transmission Date: 20210717
  Serious: Yes (Death, Hospitalization)
  Sender: FDA-Public Use
  Company Number: US-OTSUKA-2021_012323

PATIENT
  Age: 61 Year
  Sex: Female

DRUGS (1)
  1. ASTX727 [Suspect]
     Active Substance: CEDAZURIDINE\DECITABINE
     Indication: MYELODYSPLASTIC SYNDROME
     Dosage: (35 MG DECITABINE AND 100 MG CEDAZURIDINE) QD
     Route: 048
     Dates: start: 20201211

REACTIONS (6)
  - Headache [Recovered/Resolved]
  - Blood count abnormal [Recovering/Resolving]
  - Platelet count decreased [Recovering/Resolving]
  - Death [Fatal]
  - Nausea [Recovered/Resolved]
  - Product use issue [Unknown]

NARRATIVE: CASE EVENT DATE: 202105
